FAERS Safety Report 5384783-2 (Version None)
Quarter: 2007Q3

REPORT INFORMATION
  Report Type: 
  Country: None (occurrence: None)
  Receive Date: 20070711
  Receipt Date: 20070629
  Transmission Date: 20080115
  Serious: Yes (Other)
  Sender: FDA-Public Use
  Company Number: FR-PFIZER INC-2007055305

PATIENT
  Age: 42 Year
  Sex: Male

DRUGS (7)
  1. CHAMPIX [Suspect]
     Indication: SMOKING CESSATION THERAPY
     Dates: start: 20070530, end: 20070610
  2. PIMOZIDE [Concomitant]
  3. DIAZEPAM [Concomitant]
  4. ZOLPIDEM TARTRATE [Concomitant]
  5. SERTRALINE [Concomitant]
  6. ALIMEMAZINE TARTRATE [Concomitant]
  7. AMITRIPTYLINE HCL [Concomitant]

REACTIONS (2)
  - ANXIETY [None]
  - DEPRESSION [None]
